FAERS Safety Report 6993671-7 (Version None)
Quarter: 2010Q3

REPORT INFORMATION
  Report Type: 
  Country: None (occurrence: None)
  Receive Date: 20100917
  Receipt Date: 20071008
  Transmission Date: 20110219
  Serious: Yes (Hospitalization, Other)
  Sender: FDA-Public Use
  Company Number: US-ASTRAZENECA-2006UW22896

PATIENT
  Age: 51 Year
  Sex: Male
  Weight: 81 kg

DRUGS (24)
  1. SEROQUEL [Suspect]
     Indication: POST-TRAUMATIC STRESS DISORDER
     Route: 048
     Dates: start: 19970101
  2. SEROQUEL [Suspect]
     Indication: DEPRESSION
     Route: 048
     Dates: start: 19970101
  3. SEROQUEL [Suspect]
     Indication: SCHIZOPHRENIA
     Route: 048
     Dates: start: 19970101
  4. SEROQUEL [Suspect]
     Route: 048
     Dates: start: 19970101
  5. SEROQUEL [Suspect]
     Route: 048
     Dates: start: 19970101
  6. SEROQUEL [Suspect]
     Route: 048
     Dates: start: 19970101
  7. SEROQUEL [Suspect]
     Dosage: 25-300 MG
     Route: 048
     Dates: start: 20030822
  8. SEROQUEL [Suspect]
     Dosage: 25-300 MG
     Route: 048
     Dates: start: 20030822
  9. SEROQUEL [Suspect]
     Dosage: 25-300 MG
     Route: 048
     Dates: start: 20030822
  10. GEODON [Concomitant]
  11. NAVANE [Concomitant]
  12. THORAZINE [Concomitant]
  13. ZYPREXA [Concomitant]
  14. LORTAB [Concomitant]
     Indication: PAIN
     Dosage: 5/500, 1-2 TAB EVERY 4-6 HOURS
     Route: 048
     Dates: start: 20031118
  15. ZANTAC [Concomitant]
     Indication: GASTROOESOPHAGEAL REFLUX DISEASE
     Dosage: 300-600 MG
     Route: 048
     Dates: start: 19950812
  16. SIMVASTATIN [Concomitant]
     Indication: BLOOD CHOLESTEROL ABNORMAL
     Route: 048
     Dates: start: 20030930, end: 20071117
  17. SERTRALINE HYDROCHLORIDE [Concomitant]
     Indication: DEPRESSION
     Route: 048
     Dates: start: 20030912
  18. LORATADINE [Concomitant]
     Indication: HYPERSENSITIVITY
     Route: 048
     Dates: start: 20030729, end: 20040729
  19. DICLOFENAC SODIUM [Concomitant]
     Indication: ARTHRITIS
     Route: 048
     Dates: start: 20030331
  20. NORVASC [Concomitant]
     Indication: BLOOD PRESSURE
     Route: 048
     Dates: start: 20030429
  21. CLONAZEPAM [Concomitant]
     Indication: ANXIETY
     Dates: start: 20031118
  22. LEVAQUIN [Concomitant]
     Dosage: 250-500 MG
     Route: 048
     Dates: start: 20031118
  23. TRAMADOL HYDROCHLORIDE [Concomitant]
     Indication: PAIN
     Route: 048
     Dates: start: 20030331, end: 20040331
  24. METHOTREXATE [Concomitant]
     Indication: RHEUMATOID ARTHRITIS
     Dosage: 2.5 MG, FOUR TABS, ONCE A WEEK
     Route: 048
     Dates: start: 20030331, end: 20040331

REACTIONS (4)
  - DIABETES MELLITUS [None]
  - PANCREATITIS [None]
  - PANCREATITIS ACUTE [None]
  - PANCREATITIS RELAPSING [None]
